FAERS Safety Report 18107933 (Version 2)
Quarter: 2020Q3

REPORT INFORMATION
  Report Type: Spontaneous
  Country: FR (occurrence: FR)
  Receive Date: 20200804
  Receipt Date: 20200807
  Transmission Date: 20201103
  Serious: Yes (Disabling)
  Sender: FDA-Public Use
  Company Number: FR-TEVA-2020-FR-1808891

PATIENT
  Age: 52 Year
  Sex: Male

DRUGS (2)
  1. ACTIQ [Suspect]
     Active Substance: FENTANYL CITRATE
     Dosage: 200 MICROGRAM DAILY; CURRENT DOSE
     Route: 065
  2. ACTIQ [Suspect]
     Active Substance: FENTANYL CITRATE
     Indication: BACK PAIN
     Dosage: THREE TO FIVE LOZENGES PER DAY, STARTED AT LEAST 20 YEARS EARLIER
     Route: 065
     Dates: end: 202007

REACTIONS (6)
  - Cold sweat [Recovered/Resolved]
  - Mouth ulceration [Recovered/Resolved]
  - Burning sensation mucosal [Recovered/Resolved]
  - Tongue discolouration [Recovered/Resolved]
  - Oral candidiasis [Recovered/Resolved]
  - Product use in unapproved indication [Unknown]

NARRATIVE: CASE EVENT DATE: 20200723
